FAERS Safety Report 14819283 (Version 1)
Quarter: 2018Q2

REPORT INFORMATION
  Report Type: Spontaneous
  Country: PR (occurrence: US)
  Receive Date: 20180427
  Receipt Date: 20180427
  Transmission Date: 20180711
  Serious: Yes (Other)
  Sender: FDA-Public Use
  Company Number: PR-BAYER-2018-069035

PATIENT
  Age: 59 Year
  Sex: Female

DRUGS (4)
  1. XARELTO [Suspect]
     Active Substance: RIVAROXABAN
     Indication: DEEP VEIN THROMBOSIS
     Dosage: UNK
     Route: 048
     Dates: start: 20141014, end: 20160422
  2. XARELTO [Suspect]
     Active Substance: RIVAROXABAN
     Indication: PULMONARY EMBOLISM
  3. BAYER ASPIRIN [Suspect]
     Active Substance: ASPIRIN
     Dosage: 81 MG, QD
     Route: 048
  4. MOBIC [Suspect]
     Active Substance: MELOXICAM
     Indication: PRODUCT USED FOR UNKNOWN INDICATION
     Dosage: UNK
     Route: 065
     Dates: end: 2016

REACTIONS (3)
  - Gastrointestinal haemorrhage [Unknown]
  - Haemoptysis [Unknown]
  - Epistaxis [Recovered/Resolved]

NARRATIVE: CASE EVENT DATE: 20150214
